FAERS Safety Report 4309543-2 (Version None)
Quarter: 2004Q1

REPORT INFORMATION
  Report Type: 
  Country: None (occurrence: None)
  Receive Date: 20040302
  Receipt Date: 20040218
  Transmission Date: 20041129
  Serious: Yes (Hospitalization)
  Sender: FDA-Public Use
  Company Number: CIP03003121

PATIENT
  Age: 77 Year
  Sex: Female

DRUGS (8)
  1. ACTONEL [Suspect]
     Indication: OSTEOPOROSIS
     Dosage: 35 MG ONCE WEEKLY, ORAL
     Route: 048
     Dates: start: 20020101, end: 20030721
  2. ATENOLOL [Concomitant]
  3. HYDROCHLOROTHIAZIDE [Concomitant]
  4. LEVOXYL (LEVOTHROXINE SODIUM) [Concomitant]
  5. CITRACAL (CALCIUM CITRATE) [Concomitant]
  6. ACETYLSALICYLIC ACID SRT [Concomitant]
  7. CENTRUM SILVER (MINERALS, TOCOPHERYL ACETATE, VITAMIN B NOS, VITAMINS [Concomitant]
  8. CALTRATE [Concomitant]

REACTIONS (8)
  - ASTHENIA [None]
  - BLOOD PRESSURE INCREASED [None]
  - DYSPNOEA [None]
  - MUSCULOSKELETAL STIFFNESS [None]
  - OESOPHAGEAL DISORDER [None]
  - OESOPHAGEAL STENOSIS [None]
  - OESOPHAGITIS [None]
  - PAIN IN EXTREMITY [None]
